FAERS Safety Report 7070229-5 (Version None)
Quarter: 2010Q4

REPORT INFORMATION
  Report Type: 
  Country: None (occurrence: None)
  Receive Date: 20101028
  Receipt Date: 20100917
  Transmission Date: 20110411
  Serious: Yes (Other)
  Sender: FDA-Public Use
  Company Number: US-WYE-H17558010

PATIENT
  Sex: Female
  Weight: 57 kg

DRUGS (8)
  1. PANTOPRAZOLE [Suspect]
     Indication: GASTROOESOPHAGEAL REFLUX DISEASE
     Dosage: UNKNOWN
  2. ZETIA [Concomitant]
     Dosage: UNKNOWN
  3. VITAMINS [Concomitant]
     Dosage: UNKNOWN
  4. LISINOPRIL [Concomitant]
     Dosage: UNKNOWN
  5. FISH OIL, HYDROGENATED [Concomitant]
     Dosage: UNKNOWN
  6. OSCAL [Concomitant]
     Dosage: UNKNOWN
  7. PLAVIX [Suspect]
     Indication: STENT PLACEMENT
     Dosage: UNKNOWN
  8. TOPROL-XL [Concomitant]
     Dosage: UNKNOWN

REACTIONS (1)
  - ABDOMINAL PAIN UPPER [None]
